FAERS Safety Report 19046820 (Version 3)
Quarter: 2021Q2

REPORT INFORMATION
  Report Type: Spontaneous
  Country: US (occurrence: US)
  Receive Date: 20210322
  Receipt Date: 20210623
  Transmission Date: 20210717
  Serious: No
  Sender: FDA-Public Use
  Company Number: US-BRISTOL-MYERS SQUIBB COMPANY-BMS-2021-027669

PATIENT
  Sex: Female

DRUGS (1)
  1. ORENCIA [Suspect]
     Active Substance: ABATACEPT
     Indication: GIANT CELL ARTERITIS
     Dosage: 1 SYRINGE, QWK
     Route: 058

REACTIONS (2)
  - Back pain [Unknown]
  - Intentional product use issue [Unknown]
